FAERS Safety Report 9280005 (Version 1)
Quarter: 2013Q2

REPORT INFORMATION
  Report Type: Spontaneous
  Country: US (occurrence: None)
  Receive Date: 20130506
  Receipt Date: 20130506
  Transmission Date: 20140414
  Serious: No
  Sender: FDA-Public Use
  Company Number: None

PATIENT
  Age: 29 Year
  Sex: Female

DRUGS (1)
  1. LOVENOX [Suspect]

REACTIONS (4)
  - Faecal incontinence [None]
  - Fibromyalgia [None]
  - Condition aggravated [None]
  - Hypoaesthesia [None]
